FAERS Safety Report 21384549 (Version 2)
Quarter: 2022Q4

REPORT INFORMATION
  Report Type: Spontaneous
  Country: US (occurrence: US)
  Receive Date: 20220928
  Receipt Date: 20221011
  Transmission Date: 20230113
  Serious: Yes (Hospitalization)
  Sender: FDA-Public Use
  Company Number: US-PFIZER INC-2018293989

PATIENT
  Age: 36 Year
  Sex: Female

DRUGS (3)
  1. XELJANZ [Suspect]
     Active Substance: TOFACITINIB CITRATE
     Indication: Colitis ulcerative
     Dosage: 5 MG, 2X/DAY
  2. XELJANZ [Suspect]
     Active Substance: TOFACITINIB CITRATE
     Dosage: 10 MG, 2X/DAY, (FOR OVER 16 WEEKS)
     Route: 048
     Dates: start: 20200401
  3. XELJANZ [Suspect]
     Active Substance: TOFACITINIB CITRATE
     Dosage: 10 MG
     Dates: start: 20180901, end: 20220926

REACTIONS (6)
  - COVID-19 [Unknown]
  - Hepatic enzyme increased [Unknown]
  - Faeces discoloured [Unknown]
  - Peripheral swelling [Unknown]
  - Off label use [Unknown]
  - Product use issue [Unknown]
